FAERS Safety Report 4563863-5 (Version None)
Quarter: 2005Q1

REPORT INFORMATION
  Report Type: 
  Country: None (occurrence: None)
  Receive Date: 20050128
  Receipt Date: 20050119
  Transmission Date: 20050727
  Serious: Yes (Other)
  Sender: FDA-Public Use
  Company Number: PHHO2005CA01368

PATIENT
  Sex: Male

DRUGS (5)
  1. EFFEXOR [Concomitant]
  2. CLONAZEPAM [Concomitant]
  3. MOBICOX [Concomitant]
  4. ACEBUTOLOL [Concomitant]
  5. ZELNORM [Suspect]
     Route: 048

REACTIONS (2)
  - CATHETER PLACEMENT [None]
  - URINARY RETENTION [None]
